FAERS Safety Report 8389597 (Version 2)
Quarter: 2012Q4

REPORT INFORMATION
  Report Type: 
  Country: US (occurrence: US)
  Receive Date: 20120203
  Receipt Date: 20121015
  Transmission Date: 20130627
  Serious: Yes (Death)
  Sender: FDA-Public Use
  Company Number: US-ROCHE-1036276

PATIENT
  Sex: Female

DRUGS (7)
  1. AVASTIN [Suspect]
     Indication: BREAST CANCER FEMALE
     Route: 065
     Dates: start: 20060926
  2. AVASTIN [Suspect]
     Route: 065
     Dates: start: 20061010
  3. AVASTIN [Suspect]
     Route: 065
     Dates: start: 20061024
  4. TAXOL [Concomitant]
  5. NAVELBINE [Concomitant]
  6. ADRIA [Concomitant]
  7. CARBOPLATIN [Concomitant]

REACTIONS (3)
  - Disease progression [Unknown]
  - No therapeutic response [Unknown]
  - Death [Fatal]
